FAERS Safety Report 6543140-3 (Version None)
Quarter: 2010Q1

REPORT INFORMATION
  Report Type: 
  Country: None (occurrence: None)
  Receive Date: 20100120
  Receipt Date: 20100111
  Transmission Date: 20100710
  Serious: Yes (Other)
  Sender: FDA-Public Use
  Company Number: US-AMGEN-QUU380015

PATIENT
  Sex: Female
  Weight: 120.8 kg

DRUGS (14)
  1. ENBREL [Suspect]
     Indication: PSORIATIC ARTHROPATHY
     Route: 058
     Dates: start: 20040501
  2. GLYBURIDE AND METFORMIN HYDROCHLORIDE [Concomitant]
  3. UNSPECIFIED ANTIDIABETIC AGENT [Concomitant]
  4. OMEPRAZOLE [Concomitant]
     Dates: start: 20090501
  5. OXYCODONE HCL AND ACETAMINOPHEN [Concomitant]
  6. SYNTHROID [Concomitant]
  7. MINOCYCLINE [Concomitant]
     Dates: start: 20090401
  8. LISINOPRIL [Concomitant]
     Dates: start: 20090401
  9. ZYRTEC [Concomitant]
  10. NEURONTIN [Concomitant]
  11. METOPROLOL [Concomitant]
  12. LASIX [Concomitant]
  13. TRAZODONE [Concomitant]
  14. LEVEMIR [Concomitant]
     Dates: start: 20090501

REACTIONS (14)
  - ARTHRITIS [None]
  - DIABETES MELLITUS [None]
  - DIABETIC ENTEROPATHY [None]
  - DIARRHOEA [None]
  - FATIGUE [None]
  - INJECTION SITE ERYTHEMA [None]
  - INJECTION SITE PAIN [None]
  - INJECTION SITE SWELLING [None]
  - JOINT INJURY [None]
  - MEMORY IMPAIRMENT [None]
  - OSTEOPOROSIS [None]
  - SEASONAL ALLERGY [None]
  - THYROID DISORDER [None]
  - WEIGHT INCREASED [None]
